FAERS Safety Report 7966397-0 (Version None)
Quarter: 2011Q4

REPORT INFORMATION
  Report Type: 
  Country: None (occurrence: None)
  Receive Date: 20111208
  Receipt Date: 20111129
  Transmission Date: 20120403
  Serious: Yes (Hospitalization)
  Sender: FDA-Public Use
  Company Number: US-MPIJNJ-2011-06089

PATIENT
  Age: 72 Year
  Sex: Female
  Weight: 65.306 kg

DRUGS (1)
  1. VELCADE [Suspect]
     Indication: MULTIPLE MYELOMA
     Dosage: 2.7 MG, 2/WEEK
     Route: 042
     Dates: start: 20100118

REACTIONS (2)
  - FALL [None]
  - ASTHENIA [None]
